FAERS Safety Report 25160694 (Version 2)
Quarter: 2025Q3

REPORT INFORMATION
  Report Type: Spontaneous
  Country: JP (occurrence: JP)
  Receive Date: 20250404
  Receipt Date: 20250924
  Transmission Date: 20251021
  Serious: Yes (Other)
  Sender: ASTELLAS
  Company Number: JP-ASTELLAS-2024-AER-025364

PATIENT
  Age: 73 Year
  Sex: Male

DRUGS (1)
  1. PADCEV [Suspect]
     Active Substance: ENFORTUMAB VEDOTIN-EJFV
     Indication: Bladder cancer
     Route: 065

REACTIONS (5)
  - Decubitus ulcer [Not Recovered/Not Resolved]
  - Paraesthesia [Not Recovered/Not Resolved]
  - Pyrexia [Recovered/Resolved]
  - Decreased appetite [Not Recovered/Not Resolved]
  - Visual impairment [Not Recovered/Not Resolved]

NARRATIVE: CASE EVENT DATE: 20241212
